FAERS Safety Report 10392857 (Version 1)
Quarter: 2014Q3

REPORT INFORMATION
  Report Type: Spontaneous
  Country: US (occurrence: None)
  Receive Date: 20140815
  Receipt Date: 20140815
  Transmission Date: 20150326
  Serious: Yes (Other)
  Sender: FDA-Public Use
  Company Number: A1084654A

PATIENT

DRUGS (1)
  1. CALCIUM CARBONATE. [Suspect]
     Active Substance: CALCIUM CARBONATE
     Dosage: INTRANASAL

REACTIONS (4)
  - Intentional product misuse [None]
  - Exophthalmos [None]
  - Blindness unilateral [None]
  - Fear [None]
